FAERS Safety Report 7383120-1 (Version None)
Quarter: 2011Q1

REPORT INFORMATION
  Report Type: 
  Country: None (occurrence: None)
  Receive Date: 20110322
  Receipt Date: 20110312
  Transmission Date: 20110831
  Serious: Yes (Other)
  Sender: FDA-Public Use
  Company Number: 2011SP011931

PATIENT
  Sex: Male

DRUGS (2)
  1. PEG-INTRON [Suspect]
     Indication: HEPATITIS C
     Dates: start: 20110304
  2. REBETOL [Suspect]
     Indication: HEPATITIS C
     Dates: start: 20110304

REACTIONS (4)
  - PAIN [None]
  - HAEMATOCHEZIA [None]
  - DIARRHOEA [None]
  - CHILLS [None]
